FAERS Safety Report 9029489 (Version 2)
Quarter: 2013Q1

REPORT INFORMATION
  Report Type: Spontaneous
  Country: PT (occurrence: PT)
  Receive Date: 20130124
  Receipt Date: 20130227
  Transmission Date: 20140127
  Serious: Yes (Other)
  Sender: FDA-Public Use
  Company Number: PT-BRISTOL-MYERS SQUIBB COMPANY-17293432

PATIENT
  Sex: Female

DRUGS (1)
  1. BARACLUDE [Suspect]
     Dates: start: 200807, end: 201107

REACTIONS (1)
  - Liver disorder [Unknown]
